FAERS Safety Report 4880653-4 (Version None)
Quarter: 2006Q1

REPORT INFORMATION
  Report Type: 
  Country: None (occurrence: None)
  Receive Date: 20060113
  Receipt Date: 20050314
  Transmission Date: 20060701
  Serious: Yes (Hospitalization)
  Sender: FDA-Public Use
  Company Number: US-MERCK-0503USA02957

PATIENT
  Age: 58 Year
  Sex: Male
  Weight: 114 kg

DRUGS (6)
  1. VIOXX [Suspect]
     Indication: ARTHRALGIA
     Route: 048
     Dates: start: 20030901, end: 20040501
  2. VIOXX [Suspect]
     Route: 048
     Dates: start: 20010101
  3. AMITRIPTYLINE HYDROCHLORIDE [Concomitant]
     Route: 065
  4. DIAZEPAM [Concomitant]
     Route: 065
  5. ATENOLOL [Concomitant]
     Route: 065
  6. MOTRIN [Concomitant]
     Route: 065

REACTIONS (4)
  - CARDIAC DISORDER [None]
  - CHEST PAIN [None]
  - HYPERTENSION [None]
  - MYOCARDIAL INFARCTION [None]
